FAERS Safety Report 8244772-7 (Version None)
Quarter: 2012Q1

REPORT INFORMATION
  Report Type: 
  Country: None (occurrence: None)
  Receive Date: 20120329
  Receipt Date: 20110418
  Transmission Date: 20120608
  Serious: No
  Sender: FDA-Public Use
  Company Number: US-MYLANLABS-2011S1006705

PATIENT
  Age: 52 Year
  Sex: Female
  Weight: 74.84 kg

DRUGS (14)
  1. FENTANYL-100 [Suspect]
     Dosage: CHANGED Q72H.
     Route: 062
     Dates: start: 20110327, end: 20110327
  2. SIMVASTATIN [Concomitant]
     Indication: BLOOD CHOLESTEROL
     Route: 048
  3. FENTANYL-100 [Suspect]
     Indication: ARTHRITIS
     Dosage: CHANGED Q72H.
     Route: 062
     Dates: start: 20110325, end: 20110326
  4. HYDROCHLOROTHIAZIDE [Concomitant]
     Route: 048
  5. ZANAFLEX [Concomitant]
     Route: 048
  6. FENTANYL-100 [Suspect]
     Indication: BACK PAIN
     Dosage: CHANGED Q72H.
     Route: 062
     Dates: start: 20110325, end: 20110326
  7. FENTANYL-100 [Suspect]
     Dosage: CHANGED Q72H.
     Route: 062
     Dates: start: 20110327, end: 20110327
  8. FENTANYL-100 [Suspect]
     Dosage: CHANGED Q72H.
     Route: 062
     Dates: start: 20110327, end: 20110327
  9. RISPERIDONE [Concomitant]
     Route: 048
  10. ATENOLOL [Concomitant]
     Indication: HYPERTENSION
     Route: 048
  11. ENALAPRIL [Concomitant]
     Route: 048
  12. CELEXA [Concomitant]
     Route: 048
  13. FENTANYL-100 [Suspect]
     Indication: SPINAL COLUMN STENOSIS
     Dosage: CHANGED Q72H.
     Route: 062
     Dates: start: 20110325, end: 20110326
  14. PERCOCET [Concomitant]
     Indication: BREAKTHROUGH PAIN
     Route: 048

REACTIONS (11)
  - MOOD SWINGS [None]
  - NAUSEA [None]
  - SEDATION [None]
  - DRUG EFFECT INCREASED [None]
  - SOMNOLENCE [None]
  - VOMITING [None]
  - ANGER [None]
  - CRYING [None]
  - VISION BLURRED [None]
  - PRODUCT TASTE ABNORMAL [None]
  - HYPERHIDROSIS [None]
